FAERS Safety Report 4746410-4 (Version None)
Quarter: 2005Q3

REPORT INFORMATION
  Report Type: 
  Country: None (occurrence: None)
  Receive Date: 20050815
  Receipt Date: 20050801
  Transmission Date: 20060218
  Serious: Yes (Other)
  Sender: FDA-Public Use
  Company Number: GBS050818069

PATIENT
  Age: 77 Year
  Sex: Female
  Weight: 59 kg

DRUGS (3)
  1. YENTREVE (DULOXETINE HYDROCHLORIDE) [Suspect]
     Indication: INCONTINENCE
     Dosage: 20 MG/2 DAY
     Dates: start: 20050601, end: 20050604
  2. DIDRONEL [Concomitant]
  3. DICLOFENAC [Concomitant]

REACTIONS (4)
  - DIARRHOEA [None]
  - SOMNOLENCE [None]
  - TINNITUS [None]
  - VOMITING [None]
